FAERS Safety Report 13067487 (Version 1)
Quarter: 2016Q4

REPORT INFORMATION
  Report Type: Spontaneous
  Country: US (occurrence: US)
  Receive Date: 20161228
  Receipt Date: 20161228
  Transmission Date: 20170207
  Serious: No
  Sender: FDA-Public Use
  Company Number: US-ASTRAZENECA-2016SF34488

PATIENT

DRUGS (1)
  1. NEXIUM [Suspect]
     Active Substance: ESOMEPRAZOLE MAGNESIUM
     Dosage: FREQUENCY UNKNOWN
     Route: 048

REACTIONS (4)
  - Gastrooesophageal reflux disease [Unknown]
  - Malaise [Unknown]
  - Nightmare [Unknown]
  - Drug dose omission [Unknown]
